FAERS Safety Report 9695929 (Version 1)
Quarter: 2013Q4

REPORT INFORMATION
  Report Type: Spontaneous
  Country: GB (occurrence: GB)
  Receive Date: 20131119
  Receipt Date: 20131119
  Transmission Date: 20140711
  Serious: Yes (Life-Threatening)
  Sender: FDA-Public Use
  Company Number: GB-GLAXOSMITHKLINE-B0942399A

PATIENT
  Age: 38 Year
  Sex: Male

DRUGS (6)
  1. NIQUITIN [Suspect]
     Indication: SMOKING CESSATION THERAPY
     Route: 048
     Dates: start: 20130920
  2. RAMIPRIL [Concomitant]
  3. METFORMIN [Concomitant]
  4. HUMULIN I [Concomitant]
  5. OLIVE OIL [Concomitant]
  6. SIMVASTATIN [Concomitant]

REACTIONS (4)
  - Hyperhidrosis [Not Recovered/Not Resolved]
  - Weight increased [Not Recovered/Not Resolved]
  - Self-injurious ideation [Not Recovered/Not Resolved]
  - Feeling hot [Not Recovered/Not Resolved]
